FAERS Safety Report 12148016 (Version 1)
Quarter: 2016Q1

REPORT INFORMATION
  Report Type: Spontaneous
  Country: US (occurrence: US)
  Receive Date: 20160304
  Receipt Date: 20160304
  Transmission Date: 20160526
  Serious: Yes (Hospitalization, Other)
  Sender: FDA-Public Use
  Company Number: US-TEVA-640280USA

PATIENT
  Age: 88 Year
  Sex: Male
  Weight: 60.38 kg

DRUGS (6)
  1. AMIODARONE (ZYDUS PHARMACE) [Suspect]
     Active Substance: AMIODARONE
     Indication: TACHYCARDIA
     Dosage: TAKE HALF A TABLET
     Route: 048
     Dates: start: 20150925
  2. AMIODARONE (ZYDUS PHARMACE) [Suspect]
     Active Substance: AMIODARONE
     Indication: ATRIAL FIBRILLATION
  3. LOSARTAN. [Suspect]
     Active Substance: LOSARTAN
     Indication: BLOOD PRESSURE ABNORMAL
     Dosage: 25 MILLIGRAM DAILY;
     Route: 048
  4. ELIQUIS [Suspect]
     Active Substance: APIXABAN
     Indication: ANTICOAGULANT THERAPY
     Dosage: TWO TABLETS
     Route: 065
     Dates: start: 20150925
  5. ATORVASTATIN [Suspect]
     Active Substance: ATORVASTATIN
     Dosage: 40 MILLIGRAM DAILY;
     Route: 048
     Dates: start: 201207
  6. ASPIRIN. [Concomitant]
     Active Substance: ASPIRIN
     Indication: ANTICOAGULANT THERAPY
     Dosage: 81 MILLIGRAM DAILY;
     Route: 048

REACTIONS (5)
  - Cheilitis [Not Recovered/Not Resolved]
  - Chapped lips [Not Recovered/Not Resolved]
  - Atrial fibrillation [Recovered/Resolved]
  - Haemorrhage [Recovering/Resolving]
  - Lip swelling [Not Recovered/Not Resolved]

NARRATIVE: CASE EVENT DATE: 20150924
